FAERS Safety Report 11996039 (Version 8)
Quarter: 2018Q3

REPORT INFORMATION
  Report Type: Spontaneous
  Country: US (occurrence: US)
  Receive Date: 20160203
  Receipt Date: 20180924
  Transmission Date: 20181010
  Serious: Yes (Hospitalization, Other)
  Sender: FDA-Public Use
  Company Number: US-DSJP-DSU-2015-131868

PATIENT

DRUGS (22)
  1. BENICAR [Suspect]
     Active Substance: OLMESARTAN MEDOXOMIL
     Indication: HYPERTENSION
     Dosage: 40 MG, UNK
     Dates: start: 20120813, end: 20121219
  2. PRAVASTATIN. [Concomitant]
     Active Substance: PRAVASTATIN
     Indication: BLOOD CHOLESTEROL INCREASED
     Dosage: 20 MG, QD
     Route: 048
  3. CARVEDIOL [Concomitant]
     Active Substance: CARVEDILOL
     Indication: HYPERTENSION
     Dosage: 12.5 MG, UNK
  4. FLUCONAZOLE. [Concomitant]
     Active Substance: FLUCONAZOLE
     Indication: PRODUCT USED FOR UNKNOWN INDICATION
     Dosage: UNK
  5. BENICAR HCT [Suspect]
     Active Substance: HYDROCHLOROTHIAZIDE\OLMESARTAN MEDOXOMIL
     Dosage: 40/25 MG, QD
     Route: 048
     Dates: start: 20091111, end: 20150409
  6. BENICAR [Suspect]
     Active Substance: OLMESARTAN MEDOXOMIL
     Dosage: 40 MG, QD
     Route: 048
     Dates: start: 201404
  7. BENICAR HCT [Suspect]
     Active Substance: HYDROCHLOROTHIAZIDE\OLMESARTAN MEDOXOMIL
     Dosage: 40?12.5 MG, QD
     Route: 048
  8. OMEPRAZOLE. [Concomitant]
     Active Substance: OMEPRAZOLE
     Indication: GASTROOESOPHAGEAL REFLUX DISEASE
     Dosage: 40 MG, BID
     Dates: start: 201412
  9. CARAFATE [Concomitant]
     Active Substance: SUCRALFATE
     Indication: DUODENAL ULCER
     Dosage: 10 ML 2 TEASPOON/DAY BEFORE MEAL, UNK
  10. AMLODIPINE BESYLATE. [Concomitant]
     Active Substance: AMLODIPINE BESYLATE
     Dosage: 10 MG, QD
     Route: 048
     Dates: start: 201504
  11. CELEBREX [Concomitant]
     Active Substance: CELECOXIB
     Indication: PRODUCT USED FOR UNKNOWN INDICATION
     Dosage: 200 MG, BID
  12. METHOCARBAMOL. [Concomitant]
     Active Substance: METHOCARBAMOL
     Indication: PRODUCT USED FOR UNKNOWN INDICATION
     Dosage: 750 MG, UNK
  13. BENICAR HCT [Suspect]
     Active Substance: HYDROCHLOROTHIAZIDE\OLMESARTAN MEDOXOMIL
     Dosage: 20/12.5 MG, BID
     Dates: start: 20130115, end: 20130118
  14. AMLODIPINE BESYLATE. [Concomitant]
     Active Substance: AMLODIPINE BESYLATE
     Indication: HYPERTENSION
     Dosage: 5 MG, QD
     Route: 048
     Dates: start: 201504
  15. CLOTRIM [Concomitant]
     Indication: RASH
     Dosage: UNK
  16. TRAMADOL HCL [Concomitant]
     Active Substance: TRAMADOL HYDROCHLORIDE
     Indication: PRODUCT USED FOR UNKNOWN INDICATION
     Dosage: UNK
  17. VIMOVO [Concomitant]
     Active Substance: ESOMEPRAZOLE MAGNESIUM\NAPROXEN
     Indication: GASTRIC ULCER
     Dosage: 500/20 MG, BID
     Dates: start: 201412
  18. HYOSCYAMINE. [Concomitant]
     Active Substance: HYOSCYAMINE
     Indication: PRODUCT USED FOR UNKNOWN INDICATION
     Dosage: UNK
  19. BENICAR HCT [Suspect]
     Active Substance: HYDROCHLOROTHIAZIDE\OLMESARTAN MEDOXOMIL
     Indication: HYPERTENSION
     Dosage: 20/12.5 MG, ONE WEEK
     Dates: start: 20060626
  20. BENICAR HCT [Suspect]
     Active Substance: HYDROCHLOROTHIAZIDE\OLMESARTAN MEDOXOMIL
     Dosage: 20/12.5 MG, QD
     Dates: start: 20100818
  21. HYDROCODONE BITARTRATE AND ACETAMINOPHEN [Concomitant]
     Active Substance: ACETAMINOPHEN\HYDROCODONE BITARTRATE
     Indication: PRODUCT USED FOR UNKNOWN INDICATION
     Dosage: 7.5MG/325MG UNK
  22. CARVEDIOL [Concomitant]
     Active Substance: CARVEDILOL
     Dosage: 12.5 MG, BID
     Route: 048

REACTIONS (7)
  - Acute kidney injury [Unknown]
  - Constipation [Unknown]
  - Cholecystitis [Recovered/Resolved]
  - Barrett^s oesophagus [Unknown]
  - Sprue-like enteropathy [Unknown]
  - Helicobacter test positive [Unknown]
  - Drug ineffective [Unknown]

NARRATIVE: CASE EVENT DATE: 2013
